FAERS Safety Report 10608156 (Version 1)
Quarter: 2014Q4

REPORT INFORMATION
  Report Type: Spontaneous
  Country: BR (occurrence: BR)
  Receive Date: 20141125
  Receipt Date: 20141125
  Transmission Date: 20150529
  Serious: Yes (Hospitalization)
  Sender: FDA-Public Use
  Company Number: BR-009507513-1411BRA011536

PATIENT
  Age: 33 Year
  Sex: Female
  Weight: 74 kg

DRUGS (2)
  1. GRACIAL [Suspect]
     Active Substance: DESOGESTREL\ETHINYL ESTRADIOL
     Indication: CONTRACEPTION
     Dosage: 1 DF, QD
     Route: 048
     Dates: start: 2011, end: 201308
  2. GRACIAL [Suspect]
     Active Substance: DESOGESTREL\ETHINYL ESTRADIOL
     Dosage: 1 DF, QD
     Route: 048
     Dates: start: 201403

REACTIONS (5)
  - Gastrointestinal disorder [Recovered/Resolved]
  - Papilloma viral infection [Not Recovered/Not Resolved]
  - Abdominal pain [Recovered/Resolved]
  - Infertility [Not Recovered/Not Resolved]
  - Polycystic ovaries [Not Recovered/Not Resolved]

NARRATIVE: CASE EVENT DATE: 201207
